FAERS Safety Report 5877883-1 (Version None)
Quarter: 2008Q3

REPORT INFORMATION
  Report Type: 
  Country: None (occurrence: None)
  Receive Date: 20080911
  Receipt Date: 20080903
  Transmission Date: 20090109
  Serious: Yes (Other)
  Sender: FDA-Public Use
  Company Number: GB-ASTRAZENECA-2008AC02429

PATIENT
  Age: 24 Month
  Sex: Male
  Weight: 9.6 kg

DRUGS (4)
  1. PROPOFOL [Suspect]
     Indication: SEDATION
     Dosage: TWO SMALL BOLUSES OF 1 MG/KG
     Route: 040
  2. MIDAZOLAM HCL [Suspect]
     Indication: SEDATION
     Dosage: PREMEDICATION
     Route: 048
  3. MIDAZOLAM HCL [Suspect]
     Dosage: FURTHER DOSE GIVEN IN ANESTHETIC ROOM
     Route: 048
  4. LEVOBUPIVACAINE [Concomitant]
     Indication: NERVE BLOCK
     Dosage: 1 ML/KG
     Route: 008

REACTIONS (3)
  - HYPERHIDROSIS [None]
  - OXYGEN SATURATION DECREASED [None]
  - TACHYCARDIA [None]
